FAERS Safety Report 10586018 (Version 1)
Quarter: 2014Q4

REPORT INFORMATION
  Report Type: Spontaneous
  Country: ES (occurrence: ES)
  Receive Date: 20141115
  Receipt Date: 20141115
  Transmission Date: 20150529
  Serious: Yes (Hospitalization)
  Sender: FDA-Public Use
  Company Number: ES-AUROBINDO-AUR-APL-2014-12010

PATIENT
  Age: 16 Year
  Sex: Male

DRUGS (2)
  1. LEVETIRACETAM AUROBINDO FILM-COATED TABLET 250MG [Suspect]
     Active Substance: LEVETIRACETAM
     Indication: EPILEPSY
     Dosage: 250 MG, UNK
     Route: 065
     Dates: start: 20140730, end: 20140902
  2. LEVETIRACETAM AUROBINDO FILM-COATED TABLET 250MG [Suspect]
     Active Substance: LEVETIRACETAM
     Dosage: 500 MG, UNK
     Route: 065
     Dates: start: 20140730, end: 20140902

REACTIONS (3)
  - Injury [None]
  - Product substitution issue [Recovered/Resolved with Sequelae]
  - Epilepsy [Recovered/Resolved with Sequelae]

NARRATIVE: CASE EVENT DATE: 20140730
